FAERS Safety Report 7585295-8 (Version None)
Quarter: 2011Q2

REPORT INFORMATION
  Report Type: 
  Country: None (occurrence: None)
  Receive Date: 20110623
  Receipt Date: 20110609
  Transmission Date: 20111010
  Serious: Yes (Hospitalization)
  Sender: FDA-Public Use
  Company Number: GER/USA/11/0018757

PATIENT
  Age: 11 Year
  Sex: Male
  Weight: 35.7 kg

DRUGS (10)
  1. ONDANSETRON [Suspect]
     Indication: PRODUCT USED FOR UNKNOWN INDICATION
  2. PROPRANOLOL [Concomitant]
  3. PROPROFOL [Concomitant]
  4. UNSPECIFIED ANTICHOLINERGIC (ANTICHOLINERGICS) [Suspect]
     Indication: PRODUCT USED FOR UNKNOWN INDICATION
  5. PANCURONIUM [Concomitant]
  6. UNSPECIIFIED (ANTICHOLINESTERASE (ANTICHOLNESTERASES) [Suspect]
     Indication: PRODUCT USED FOR UNKNOWN INDICATION
  7. PENTOTHAL [Concomitant]
  8. ISOFLURANE [Suspect]
     Indication: PRODUCT USED FOR UNKNOWN INDICATION
  9. DESFLURANE [Suspect]
     Indication: PRODUCT USED FOR UNKNOWN INDICATION
  10. SEVOFLURANE [Suspect]
     Indication: PRODUCT USED FOR UNKNOWN INDICATION

REACTIONS (1)
  - TORSADE DE POINTES [None]
